FAERS Safety Report 6923781-1 (Version None)
Quarter: 2010Q3

REPORT INFORMATION
  Report Type: 
  Country: None (occurrence: None)
  Receive Date: 20100813
  Receipt Date: 20100803
  Transmission Date: 20110219
  Serious: Yes (Hospitalization, Other)
  Sender: FDA-Public Use
  Company Number: US-ELI_LILLY_AND_COMPANY-US201008001245

PATIENT
  Sex: Male

DRUGS (6)
  1. ZYPREXA [Suspect]
     Indication: PRODUCT USED FOR UNKNOWN INDICATION
     Dosage: 5 MG, EVERY 4 HRS
     Route: 065
  2. PLAVIX [Concomitant]
     Dosage: 75 MG, UNKNOWN
     Route: 065
  3. SOMA [Concomitant]
     Dosage: 350 MG, UNKNOWN
     Route: 065
  4. METOPROLOL TARTRATE [Concomitant]
     Dosage: 50 MG, UNKNOWN
     Route: 065
  5. SENNA [Concomitant]
     Dosage: UNK, UNKNOWN
     Route: 065
  6. PEPCID [Concomitant]
     Dosage: 20 MG, UNK

REACTIONS (2)
  - HOSPITALISATION [None]
  - OVERDOSE [None]
